FAERS Safety Report 14365328 (Version 40)
Quarter: 2023Q1

REPORT INFORMATION
  Report Type: Spontaneous
  Country: GB (occurrence: GB)
  Receive Date: 20180108
  Receipt Date: 20230127
  Transmission Date: 20230418
  Serious: Yes (Other)
  Sender: FDA-Public Use
  Company Number: GB-BAXTER-2017BAX039111

PATIENT
  Age: 73 Year
  Sex: Female
  Weight: 50 kg

DRUGS (152)
  1. DEXAMETHASONE [Suspect]
     Active Substance: DEXAMETHASONE
     Indication: Plasma cell leukaemia
     Dosage: 20 MG, QD,MEDICATION ERROR, MISUSE, ABUSE, OFF LABEL USE
     Route: 065
     Dates: start: 20171102, end: 20171106
  2. DEXAMETHASONE [Suspect]
     Active Substance: DEXAMETHASONE
     Dosage: 200 UNSPECIFIED UNIT
     Route: 065
  3. DEXAMETHASONE [Suspect]
     Active Substance: DEXAMETHASONE
     Route: 065
  4. RAMIPRIL [Suspect]
     Active Substance: RAMIPRIL
     Indication: Product used for unknown indication
     Dosage: 10 MILLIGRAM, QD, ONCE A DAY, DOSAGE FORM: UNSPECIFIED,EVERY MORNING
     Route: 065
  5. RAMIPRIL [Suspect]
     Active Substance: RAMIPRIL
     Dosage: EVERY MORNING
     Route: 065
  6. RAMIPRIL [Suspect]
     Active Substance: RAMIPRIL
     Route: 065
  7. RAMIPRIL [Suspect]
     Active Substance: RAMIPRIL
     Dosage: UNSPECIFIED EVERY MORNING
     Route: 065
  8. VELCADE [Suspect]
     Active Substance: BORTEZOMIB
     Indication: Plasma cell leukaemia
     Dosage: VMP REGIMEN; LYOPHILIZED POWDER, CYCLE 1, ON DAYS 1, 4, 8, 11, 22, 25, 29, 32; CYCLICAL (INCOMPLETE)
     Route: 065
  9. VELCADE [Suspect]
     Active Substance: BORTEZOMIB
     Dosage: VMP REGIMEN, DAY 1 OF CYCLE 2, DOSE ALSO REPORTED AS 2 MG, COMPOUNDED WITH SODIUM CHLORIDE ; CYCL.
     Route: 065
     Dates: start: 20171103, end: 20171103
  10. VELCADE [Suspect]
     Active Substance: BORTEZOMIB
     Dosage: VMP REGIMEN, DAY 4 OF CYCLE 2, DOSE ALSO REPORTED AS 2 MG, COMPOUNDED WITH SODIUM CHLORIDE ; CYCL.
     Route: 058
     Dates: start: 20171106, end: 20171106
  11. VELCADE [Suspect]
     Active Substance: BORTEZOMIB
     Dosage: DOSAGE FORM: LYOPHILIZED POWDER
     Route: 058
     Dates: start: 20171107, end: 201711
  12. VELCADE [Suspect]
     Active Substance: BORTEZOMIB
     Dosage: VMP REGIMEN, DAY 8 OF CYCLE 2, DOSE ALSO REPORTED AS 2 MG, COMPOUNDED WITH SODIUM CHLORIDE ; CYCL.
     Route: 065
     Dates: start: 20171110, end: 20171110
  13. VELCADE [Suspect]
     Active Substance: BORTEZOMIB
     Dosage: DOSAGE FORM: LYOPHILIZED POWDER
     Route: 058
     Dates: start: 20171110, end: 20171114
  14. VELCADE [Suspect]
     Active Substance: BORTEZOMIB
     Dosage: 1.3 MILLIGRAM/SQ. METER (1.3 MG/M2, 1 CYCLE)/START DATE: 10-NOV-2017
     Route: 058
     Dates: end: 20171110
  15. VELCADE [Suspect]
     Active Substance: BORTEZOMIB
     Dosage: 1.3 MILLIGRAM/SQ. METER, CYCLE
     Route: 058
     Dates: end: 20171113
  16. VELCADE [Suspect]
     Active Substance: BORTEZOMIB
     Dosage: (1.8 MG/M2, 1 CYCLE)/START DATE:03-NOV-2017
     Route: 058
     Dates: end: 20171103
  17. VELCADE [Suspect]
     Active Substance: BORTEZOMIB
     Dosage: 1.8 MILLIGRAM/ START DATE:07-NOV-2017
     Route: 058
     Dates: start: 20171107, end: 201711
  18. VELCADE [Suspect]
     Active Substance: BORTEZOMIB
     Dosage: 1.3 MILLIGRAM/SQ. METER, CYCLE
     Route: 058
     Dates: end: 20171103
  19. VELCADE [Suspect]
     Active Substance: BORTEZOMIB
     Dosage: 1.8 MILLIGRAM/ START DATE:03-NOV-2017
     Route: 058
     Dates: start: 20171103, end: 20171103
  20. VELCADE [Suspect]
     Active Substance: BORTEZOMIB
     Route: 058
     Dates: start: 20171107
  21. VELCADE [Suspect]
     Active Substance: BORTEZOMIB
     Route: 058
     Dates: start: 20171103, end: 20171103
  22. MELPHALAN [Suspect]
     Active Substance: MELPHALAN
     Indication: Plasma cell leukaemia
     Dosage: CYCLE 1, VMP REGIMEN (1) ; CYCLICAL, DOSAGE FORM: UNSPECIFIED
     Route: 065
  23. MELPHALAN [Suspect]
     Active Substance: MELPHALAN
     Dosage: VMP REGIMEN, DAY 1 TO 4, CYCLE 2
     Route: 065
     Dates: start: 20171103, end: 20171103
  24. MELPHALAN [Suspect]
     Active Substance: MELPHALAN
     Dosage: DOSAGE FORM: UNSPECIFIED
     Route: 065
     Dates: start: 20171107, end: 20171110
  25. MELPHALAN [Suspect]
     Active Substance: MELPHALAN
     Dosage: DOSAGE FORM: UNSPECIFIED
     Route: 065
     Dates: start: 20171110, end: 20171117
  26. MELPHALAN [Suspect]
     Active Substance: MELPHALAN
     Dosage: DOSAGE FORM: UNSPECIFIED
     Route: 065
     Dates: start: 20171106, end: 20171106
  27. MELPHALAN [Suspect]
     Active Substance: MELPHALAN
     Route: 065
     Dates: start: 201711, end: 20171106
  28. MELPHALAN [Suspect]
     Active Substance: MELPHALAN
     Route: 065
     Dates: start: 20171103, end: 20171103
  29. MELPHALAN [Suspect]
     Active Substance: MELPHALAN
     Route: 065
     Dates: start: 20171106, end: 20171106
  30. MELPHALAN [Suspect]
     Active Substance: MELPHALAN
     Route: 065
     Dates: start: 20171110, end: 20171110
  31. MELPHALAN [Suspect]
     Active Substance: MELPHALAN
     Dosage: CYCLE 1, UNKNOWN
     Route: 065
     Dates: end: 20171110
  32. MELPHALAN [Suspect]
     Active Substance: MELPHALAN
     Route: 065
     Dates: start: 20171110, end: 20171114
  33. MELPHALAN [Suspect]
     Active Substance: MELPHALAN
     Dosage: 14 MILLIGRAM/ 1 CYCLE
     Route: 065
     Dates: start: 20171103, end: 20171106
  34. MELPHALAN [Suspect]
     Active Substance: MELPHALAN
     Dosage: 1 CYCLE
     Route: 065
     Dates: start: 20171110
  35. MELPHALAN [Suspect]
     Active Substance: MELPHALAN
     Route: 065
     Dates: start: 201711, end: 20171107
  36. MELPHALAN [Suspect]
     Active Substance: MELPHALAN
     Dosage: 14 MILLIGRAM, 1 CYCLE
     Route: 065
     Dates: start: 20171107, end: 20171110
  37. MELPHALAN [Suspect]
     Active Substance: MELPHALAN
     Route: 065
     Dates: start: 20171103, end: 20171103
  38. MELPHALAN [Suspect]
     Active Substance: MELPHALAN
     Route: 065
     Dates: start: 20171106, end: 20171106
  39. MELPHALAN [Suspect]
     Active Substance: MELPHALAN
     Dosage: 14 MG,QD
     Route: 065
     Dates: start: 20171107, end: 20171110
  40. MELPHALAN [Suspect]
     Active Substance: MELPHALAN
     Route: 065
     Dates: start: 20171107
  41. MELPHALAN [Suspect]
     Active Substance: MELPHALAN
     Route: 065
     Dates: start: 20171110, end: 20171114
  42. MELPHALAN [Suspect]
     Active Substance: MELPHALAN
     Dosage: 1 CYCLE
     Route: 065
     Dates: start: 20171110
  43. MELPHALAN [Suspect]
     Active Substance: MELPHALAN
     Dosage: 1 CYCLE
     Route: 065
     Dates: start: 20171110, end: 20171110
  44. MELPHALAN [Suspect]
     Active Substance: MELPHALAN
     Dosage: 14 MG, TID
     Route: 065
     Dates: start: 20171103, end: 20171106
  45. MELPHALAN [Suspect]
     Active Substance: MELPHALAN
     Route: 065
     Dates: start: 201711, end: 20171107
  46. MELPHALAN [Suspect]
     Active Substance: MELPHALAN
     Dosage: 266
     Route: 065
  47. PREDNISONE [Suspect]
     Active Substance: PREDNISONE
     Indication: Plasma cell leukaemia
     Dosage: DOSAGE FORM: UNSPECIFIED, 70 MG, QD 1 CYCLE
     Route: 065
     Dates: start: 20171103, end: 20171103
  48. PREDNISONE [Suspect]
     Active Substance: PREDNISONE
     Dosage: 70 UNK
     Route: 065
  49. PREDNISONE [Suspect]
     Active Substance: PREDNISONE
     Dosage: 70 MILLIGRAM, QD, 1 CYCLE
     Route: 065
     Dates: start: 20171106, end: 20171106
  50. PREDNISONE [Suspect]
     Active Substance: PREDNISONE
     Dosage: 70 MG, QD (1CYCLE)
     Route: 065
  51. PREDNISONE [Suspect]
     Active Substance: PREDNISONE
     Dosage: 70 MG, UNKNOWN
     Route: 065
  52. PREDNISONE [Suspect]
     Active Substance: PREDNISONE
     Dosage: 70 MILLIGRAM, QD (70 MG QD (1 CYCLE))
     Route: 065
  53. DURAGESIC [Suspect]
     Active Substance: FENTANYL
     Indication: Product used for unknown indication
     Dosage: 12 MICROGRAM
     Route: 062
     Dates: start: 20171108
  54. DURAGESIC [Suspect]
     Active Substance: FENTANYL
     Dosage: 12 MICROGRAM
     Route: 062
     Dates: start: 20171108
  55. DURAGESIC [Suspect]
     Active Substance: FENTANYL
     Route: 062
     Dates: start: 20171108
  56. DURAGESIC [Suspect]
     Active Substance: FENTANYL
     Route: 062
     Dates: start: 20171108
  57. DURAGESIC [Suspect]
     Active Substance: FENTANYL
     Dosage: UNK, IN 1 HOUR (START DATE: 08/NOV/2017)
     Route: 062
  58. DURAGESIC [Suspect]
     Active Substance: FENTANYL
     Route: 062
     Dates: start: 20171108
  59. DURAGESIC [Suspect]
     Active Substance: FENTANYL
     Dosage: 1 DF QH FROM START DATE: 08/NOV/2017
     Route: 062
     Dates: start: 20171108
  60. ALLOPURINOL [Suspect]
     Active Substance: ALLOPURINOL
     Indication: Product used for unknown indication
     Dosage: 30 MILLIGRAM, DAILY MEDICATION ERROR, MISUSE, ABUSE, OFF LABEL USE
     Route: 065
     Dates: start: 20171104, end: 20171120
  61. ALLOPURINOL [Suspect]
     Active Substance: ALLOPURINOL
     Dosage: DOSAGE FORM: UNSPECIFIED
     Route: 065
     Dates: start: 20171120, end: 20171120
  62. ALLOPURINOL [Suspect]
     Active Substance: ALLOPURINOL
     Dosage: 300 UNK
     Route: 065
     Dates: start: 20181120
  63. ALLOPURINOL [Suspect]
     Active Substance: ALLOPURINOL
     Dosage: 300 MILLIGRAM (THERAPY IS ONGOING)
     Route: 065
     Dates: start: 20171120
  64. ALLOPURINOL [Suspect]
     Active Substance: ALLOPURINOL
     Dosage: DOSAGE FORM: UNSPECIFIED
     Route: 065
     Dates: end: 20171120
  65. ALLOPURINOL [Suspect]
     Active Substance: ALLOPURINOL
     Dosage: 300 MILLIGRAM DAILY; MEDICATION ERROR, MISUSE, ABUSE, OFF LABEL USE
     Route: 065
     Dates: start: 20171104
  66. ALLOPURINOL [Suspect]
     Active Substance: ALLOPURINOL
     Dosage: 300 MILLIGRAM DAILY;
     Route: 065
     Dates: start: 20171104, end: 20171120
  67. ALLOPURINOL [Suspect]
     Active Substance: ALLOPURINOL
     Dosage: 30 MILLIGRAM,
     Route: 065
     Dates: start: 20171120
  68. ALLOPURINOL [Suspect]
     Active Substance: ALLOPURINOL
     Dosage: 300 MILLIGRAM DAILY;
     Route: 065
     Dates: start: 20171104, end: 20171120
  69. ALLOPURINOL [Suspect]
     Active Substance: ALLOPURINOL
     Dosage: 300 MILLIGRAM QD
     Route: 065
  70. ALLOPURINOL [Suspect]
     Active Substance: ALLOPURINOL
     Dosage: 300 MG, QD, INJECTION
     Route: 065
  71. ALLOPURINOL [Suspect]
     Active Substance: ALLOPURINOL
     Route: 065
     Dates: start: 20171104, end: 20171120
  72. ALLOPURINOL [Suspect]
     Active Substance: ALLOPURINOL
     Route: 065
  73. ALLOPURINOL [Suspect]
     Active Substance: ALLOPURINOL
     Dosage: 120 UNK
     Route: 065
  74. BORTEZOMIB [Suspect]
     Active Substance: BORTEZOMIB
     Indication: Plasma cell leukaemia
     Dosage: 1.3 MG/M2
     Route: 058
     Dates: start: 20171103, end: 20171103
  75. BORTEZOMIB [Suspect]
     Active Substance: BORTEZOMIB
     Dosage: 1.3 MG/M2, 1 CYCLE
     Route: 058
     Dates: start: 20171106, end: 20171106
  76. BORTEZOMIB [Suspect]
     Active Substance: BORTEZOMIB
     Dosage: FROM 07-NOV-2017 TO NOV-2017
     Route: 058
     Dates: start: 20171107, end: 201711
  77. BORTEZOMIB [Suspect]
     Active Substance: BORTEZOMIB
     Dosage: 1.3 MILLIGRAM/SQ. METER ((EVERY CYCLE))
     Route: 058
     Dates: start: 20171110, end: 20171110
  78. BORTEZOMIB [Suspect]
     Active Substance: BORTEZOMIB
     Dosage: 1.8 MG/M2, 1 CYCLE, LYOPHILIZED POWDER
     Route: 058
     Dates: start: 20171110, end: 20171114
  79. BORTEZOMIB [Suspect]
     Active Substance: BORTEZOMIB
     Dosage: 1.3 MG/M2, 1 CYCLE
     Route: 065
     Dates: start: 20171110, end: 20171110
  80. BORTEZOMIB [Suspect]
     Active Substance: BORTEZOMIB
     Dosage: 1.8 MG/M2
     Route: 058
     Dates: start: 20171103, end: 20171103
  81. BORTEZOMIB [Suspect]
     Active Substance: BORTEZOMIB
     Dosage: 1.8 MG/M2 Q_CYCLE
     Route: 058
     Dates: start: 20171114, end: 20171114
  82. BORTEZOMIB [Suspect]
     Active Substance: BORTEZOMIB
     Dosage: 1.8 MILLIGRAM/ START DATE:03-NOV-2017
     Route: 058
     Dates: start: 20171103, end: 20171103
  83. BORTEZOMIB [Suspect]
     Active Substance: BORTEZOMIB
     Dosage: 1 MG/M2 DAILY
     Route: 058
     Dates: start: 20171106, end: 20171106
  84. BORTEZOMIB [Suspect]
     Active Substance: BORTEZOMIB
     Dosage: 2 MG/M2, QD
     Route: 058
     Dates: start: 20171107, end: 201711
  85. BORTEZOMIB [Suspect]
     Active Substance: BORTEZOMIB
     Dosage: 1.8 MG/M2,1 CYCLE
     Route: 065
  86. BORTEZOMIB [Suspect]
     Active Substance: BORTEZOMIB
     Dosage: 2.5 MG/ML
     Route: 058
     Dates: start: 20171110, end: 20171114
  87. BORTEZOMIB [Suspect]
     Active Substance: BORTEZOMIB
     Route: 065
  88. BORTEZOMIB [Suspect]
     Active Substance: BORTEZOMIB
     Dosage: 1.8 MILLIGRAM/ START DATE:10-NOV-2017
     Route: 058
     Dates: start: 20171110, end: 20171114
  89. BORTEZOMIB [Suspect]
     Active Substance: BORTEZOMIB
     Dosage: 1.8 MILLIGRAM/ START DATE:10-NOV-2017
     Route: 065
     Dates: start: 20171110, end: 20171114
  90. FENTANYL [Suspect]
     Active Substance: FENTANYL
     Indication: Product used for unknown indication
     Dosage: 12 UG QH
     Route: 062
     Dates: start: 20201108
  91. FENTANYL [Suspect]
     Active Substance: FENTANYL
     Route: 065
     Dates: start: 20171108
  92. FENTANYL [Suspect]
     Active Substance: FENTANYL
     Route: 055
     Dates: start: 20171108
  93. FENTANYL [Suspect]
     Active Substance: FENTANYL
     Dosage: 12 UNK
     Route: 055
  94. FENTANYL [Suspect]
     Active Substance: FENTANYL
     Route: 062
     Dates: start: 20171108
  95. FENTANYL [Suspect]
     Active Substance: FENTANYL
     Route: 062
  96. FENTANYL [Suspect]
     Active Substance: FENTANYL
     Route: 065
  97. SERTRALINE [Suspect]
     Active Substance: SERTRALINE HYDROCHLORIDE
     Indication: Product used for unknown indication
     Dosage: 50 MILLIGRAM, QD, ONCE A DAY
     Route: 065
  98. SERTRALINE [Suspect]
     Active Substance: SERTRALINE HYDROCHLORIDE
     Route: 065
  99. SERTRALINE [Suspect]
     Active Substance: SERTRALINE HYDROCHLORIDE
     Route: 041
     Dates: start: 20171103, end: 20171106
  100. BENDROFLUMETHIAZIDE [Suspect]
     Active Substance: BENDROFLUMETHIAZIDE
     Indication: Product used for unknown indication
     Dosage: QD, 2.5 MILLIGRAM, ONCE A DAY
     Route: 065
  101. BENDROFLUMETHIAZIDE [Suspect]
     Active Substance: BENDROFLUMETHIAZIDE
     Dosage: QD
     Route: 065
     Dates: start: 20171107, end: 201711
  102. BENDROFLUMETHIAZIDE [Suspect]
     Active Substance: BENDROFLUMETHIAZIDE
     Dosage: QD
     Route: 065
     Dates: start: 20171110, end: 20171114
  103. BENDROFLUMETHIAZIDE [Suspect]
     Active Substance: BENDROFLUMETHIAZIDE
     Dosage: QD
     Route: 065
     Dates: start: 20171103, end: 20171103
  104. BENDROFLUMETHIAZIDE [Suspect]
     Active Substance: BENDROFLUMETHIAZIDE
     Dosage: 1.8 MG/M2 Q CYCLE/1.3 MG/M2 DAILY
     Route: 065
     Dates: start: 20171103, end: 20171103
  105. BENDROFLUMETHIAZIDE [Suspect]
     Active Substance: BENDROFLUMETHIAZIDE
     Dosage: 3 MILLIGRAM
     Route: 065
  106. BENDROFLUMETHIAZIDE [Suspect]
     Active Substance: BENDROFLUMETHIAZIDE
     Dosage: 2 MILLIGRAM
     Route: 065
     Dates: start: 20171107, end: 201711
  107. BENDROFLUMETHIAZIDE [Suspect]
     Active Substance: BENDROFLUMETHIAZIDE
     Dosage: 2 MILLIGRAM
     Route: 065
     Dates: start: 20171103, end: 20171103
  108. BENDROFLUMETHIAZIDE [Suspect]
     Active Substance: BENDROFLUMETHIAZIDE
     Route: 065
  109. BENDROFLUMETHIAZIDE [Suspect]
     Active Substance: BENDROFLUMETHIAZIDE
     Dosage: 2 MILLIGRAM
     Route: 065
     Dates: start: 20171110, end: 20171114
  110. BENDROFLUMETHIAZIDE [Suspect]
     Active Substance: BENDROFLUMETHIAZIDE
     Dosage: 3 MG (UNK1.8 MG/M2 Q_CYCLE / 1.3 MG/M2 DAILY /1.8UNK)
     Route: 065
     Dates: start: 20171107
  111. BENDROFLUMETHIAZIDE [Suspect]
     Active Substance: BENDROFLUMETHIAZIDE
     Dosage: 2 MILLIGRAM
     Route: 065
     Dates: start: 20171107, end: 20171114
  112. BENDROFLUMETHIAZIDE [Suspect]
     Active Substance: BENDROFLUMETHIAZIDE
     Route: 065
     Dates: start: 20221103, end: 20221103
  113. OMEPRAZOLE [Suspect]
     Active Substance: OMEPRAZOLE
     Indication: Product used for unknown indication
     Dosage: QD, DOSAGE FORM: UNSPECIFIED (EVERY MORNING)
     Route: 048
  114. OMEPRAZOLE [Suspect]
     Active Substance: OMEPRAZOLE
     Dosage: 20 MG, QD, UNSPECIFIED, EVERY MORNING
     Route: 048
  115. OMEPRAZOLE [Suspect]
     Active Substance: OMEPRAZOLE
     Dosage: 10 MG, QD
     Route: 065
  116. OMEPRAZOLE [Suspect]
     Active Substance: OMEPRAZOLE
     Dosage: 20 MG, QD
     Route: 065
  117. OMEPRAZOLE [Suspect]
     Active Substance: OMEPRAZOLE
     Dosage: 20 MG, QD, UNSPECIFIED, EVERY MORNING
     Route: 065
  118. FENTANYL [Suspect]
     Active Substance: FENTANYL
     Indication: Product used for unknown indication
     Dosage: 12 MICROGRAM
     Route: 062
     Dates: start: 20171108
  119. FENTANYL [Suspect]
     Active Substance: FENTANYL
     Indication: Product used for unknown indication
     Route: 062
     Dates: start: 20171108
  120. FENTANYL [Suspect]
     Active Substance: FENTANYL
     Route: 062
     Dates: start: 20171108
  121. FENTANYL [Suspect]
     Active Substance: FENTANYL
     Route: 062
  122. FENTANYL [Suspect]
     Active Substance: FENTANYL
     Route: 062
  123. FENTANYL CITRATE [Suspect]
     Active Substance: FENTANYL CITRATE
     Indication: Product used for unknown indication
     Route: 055
     Dates: start: 20171108
  124. METOCLOPRAMIDE [Suspect]
     Active Substance: METOCLOPRAMIDE
     Indication: Product used for unknown indication
     Dosage: 10 MILLIGRAM, AS NECESSARY?METOCLOPRAMIDE 5 MG/ML SOLUTION FOR INJECTION
     Route: 065
  125. SODIUM CHLORIDE [Suspect]
     Active Substance: SODIUM CHLORIDE
     Indication: Medication dilution
     Route: 041
     Dates: start: 20171103, end: 20171106
  126. SODIUM CHLORIDE [Suspect]
     Active Substance: SODIUM CHLORIDE
     Route: 041
     Dates: start: 20171107, end: 201711
  127. SODIUM CHLORIDE [Suspect]
     Active Substance: SODIUM CHLORIDE
     Route: 041
     Dates: start: 20171110, end: 20171114
  128. SODIUM CHLORIDE [Suspect]
     Active Substance: SODIUM CHLORIDE
     Route: 041
     Dates: start: 20171110, end: 20171110
  129. SODIUM CHLORIDE [Suspect]
     Active Substance: SODIUM CHLORIDE
     Route: 041
     Dates: start: 20171106, end: 20171106
  130. SODIUM CHLORIDE [Suspect]
     Active Substance: SODIUM CHLORIDE
     Route: 041
     Dates: start: 20171103, end: 20171103
  131. SODIUM CHLORIDE [Suspect]
     Active Substance: SODIUM CHLORIDE
     Dosage: 1 CYCLE
     Route: 041
     Dates: start: 20171103, end: 20171103
  132. SODIUM CHLORIDE [Suspect]
     Active Substance: SODIUM CHLORIDE
     Route: 065
  133. SODIUM CHLORIDE [Suspect]
     Active Substance: SODIUM CHLORIDE
     Dosage: 1 CYCLE  / UNK /  ?UNK UNK (1 CYCLE) / ?UNK (1 CYCLE); IV DRIP
     Route: 065
     Dates: start: 20171103, end: 20171103
  134. SODIUM CHLORIDE [Suspect]
     Active Substance: SODIUM CHLORIDE
     Dosage: UNK UNK, QD
     Route: 065
     Dates: start: 20171110, end: 20171110
  135. SODIUM CHLORIDE [Suspect]
     Active Substance: SODIUM CHLORIDE
     Dosage: UNK UNK, QD
     Route: 065
     Dates: start: 20171106, end: 20171106
  136. METOCLOPRAMIDE [Suspect]
     Active Substance: METOCLOPRAMIDE
     Indication: Product used for unknown indication
     Dosage: 10 MILLIGRAM, AS NECESSARY MEDICATION ERROR, MISUSE, ABUSE, OFF LABEL USE
     Route: 065
  137. METOCLOPRAMIDE [Suspect]
     Active Substance: METOCLOPRAMIDE
     Dosage: QD AS NECESSARY
     Route: 065
  138. METOCLOPRAMIDE HYDROCHLORIDE [Suspect]
     Active Substance: METOCLOPRAMIDE HYDROCHLORIDE
     Indication: Product used for unknown indication
     Route: 065
  139. METOCLOPRAMIDE HYDROCHLORIDE [Suspect]
     Active Substance: METOCLOPRAMIDE HYDROCHLORIDE
     Route: 065
  140. METOCLOPRAMIDE HYDROCHLORIDE [Suspect]
     Active Substance: METOCLOPRAMIDE HYDROCHLORIDE
     Dosage: 10 MG, MEDICATION ERROR, MISUSE, ABUSE, OFF LABEL USE
     Route: 065
  141. DEXAMETHASONE [Suspect]
     Active Substance: DEXAMETHASONE
     Indication: Plasma cell leukaemia
     Route: 065
  142. DEXAMETHASONE [Suspect]
     Active Substance: DEXAMETHASONE
     Route: 065
  143. DEXAMETHASONE [Suspect]
     Active Substance: DEXAMETHASONE
     Route: 065
  144. RAMIPRIL [Concomitant]
     Active Substance: RAMIPRIL
     Indication: Product used for unknown indication
     Dosage: 10 MG, QD, (UNSPECIFIED, EVERY MORNING)
  145. METOCLOPRAMIDE HYDROCHLORIDE [Concomitant]
     Active Substance: METOCLOPRAMIDE HYDROCHLORIDE
     Indication: Product used for unknown indication
     Dosage: AS NECESSARY
  146. BENDROFLUMETHIAZIDE [Concomitant]
     Active Substance: BENDROFLUMETHIAZIDE
     Indication: Product used for unknown indication
     Dosage: 2.5 MG, QD
  147. OMEPRAZOLE [Concomitant]
     Active Substance: OMEPRAZOLE
     Indication: Product used for unknown indication
     Dosage: 10 MG, QD
  148. OMEPRAZOLE [Concomitant]
     Active Substance: OMEPRAZOLE
  149. SERTRALINE [Concomitant]
     Active Substance: SERTRALINE HYDROCHLORIDE
     Indication: Product used for unknown indication
     Dosage: UNK
  150. METOCLOPRAMIDE [Concomitant]
     Active Substance: METOCLOPRAMIDE
     Indication: Product used for unknown indication
     Dosage: 20 MG, QD
  151. METOCLOPRAMIDE [Concomitant]
     Active Substance: METOCLOPRAMIDE
     Dosage: 10 MG, PRN
  152. DEXAMETHASONE [Concomitant]
     Active Substance: DEXAMETHASONE
     Indication: Product used for unknown indication

REACTIONS (15)
  - Disorientation [Recovered/Resolved]
  - Disturbance in social behaviour [Recovered/Resolved]
  - Paranoia [Recovered/Resolved]
  - Abnormal behaviour [Recovered/Resolved]
  - Emotional distress [Not Recovered/Not Resolved]
  - Agitation [Recovered/Resolved]
  - Drug abuse [Unknown]
  - Emotional distress [Not Recovered/Not Resolved]
  - Confusional state [Recovered/Resolved]
  - Hallucination [Recovered/Resolved]
  - Incorrect route of product administration [Unknown]
  - Product use in unapproved indication [Unknown]
  - Off label use [Unknown]
  - Medication error [Unknown]
  - Intentional product misuse [Unknown]

NARRATIVE: CASE EVENT DATE: 20171107
